FAERS Safety Report 8596073-5 (Version None)
Quarter: 2012Q3

REPORT INFORMATION
  Report Type: 
  Country: None (occurrence: None)
  Receive Date: 20120815
  Receipt Date: 20120112
  Transmission Date: 20120928
  Serious: Yes (Other)
  Sender: FDA-Public Use
  Company Number: US-ROCHE-1101254

PATIENT
  Sex: Female

DRUGS (9)
  1. ACTIVASE [Suspect]
     Indication: ACUTE MYOCARDIAL INFARCTION
     Route: 040
  2. ACTIVASE [Suspect]
     Dosage: 50 MG/HOUR FOR 30 MIN
     Route: 042
  3. ACTIVASE [Suspect]
     Dosage: 35 MG/HOUR FOR NEXT 60 MIN
     Route: 042
  4. MORPHINE SULFATE [Concomitant]
     Dosage: IVP
  5. HEPARIN [Concomitant]
     Dosage: 1000 UNITS/HOUR (20 CC/HOUR)
  6. HEPARIN [Concomitant]
     Dosage: 5000 UNITS
     Route: 040
  7. NTG INFUSION [Concomitant]
     Dosage: 5 MCG/MIN (1.5 CC/HOUR)
  8. ASPIRIN [Concomitant]
  9. PEPCID [Concomitant]
     Dosage: IVP

REACTIONS (1)
  - HYPERTENSION [None]
